FAERS Safety Report 7588761-4 (Version None)
Quarter: 2011Q3

REPORT INFORMATION
  Report Type: 
  Country: None (occurrence: None)
  Receive Date: 20110705
  Receipt Date: 20110701
  Transmission Date: 20111222
  Serious: Yes (Life-Threatening, Other)
  Sender: FDA-Public Use
  Company Number: JP-JNJFOC-20110608266

PATIENT
  Sex: Female

DRUGS (10)
  1. ARIXTRA [Concomitant]
     Indication: THROMBOSIS PROPHYLAXIS
     Route: 058
     Dates: start: 20110503, end: 20110508
  2. DORIPENEM MONOHYDRATE [Suspect]
     Indication: INFECTIOUS PERITONITIS
     Route: 042
     Dates: start: 20110502, end: 20110507
  3. UNKNOWN MEDICATION [Concomitant]
     Indication: FLUID REPLACEMENT
     Route: 065
     Dates: start: 20110428, end: 20110428
  4. BUMINATE [Concomitant]
     Indication: ASCITES
     Route: 041
     Dates: start: 20110502, end: 20110503
  5. FAMOSTAGINE [Concomitant]
     Indication: GASTRITIS
     Route: 065
     Dates: start: 20110428, end: 20110430
  6. BUMINATE [Concomitant]
     Indication: PULMONARY OEDEMA
     Route: 041
     Dates: start: 20110502, end: 20110503
  7. UNKNOWN MEDICATION [Concomitant]
     Route: 065
     Dates: start: 20110428, end: 20110503
  8. FIRSTCIN [Suspect]
     Indication: POST PROCEDURAL INFECTION
     Route: 041
     Dates: start: 20110428, end: 20110502
  9. DORIPENEM MONOHYDRATE [Suspect]
     Indication: POSTOPERATIVE FEVER
     Route: 042
     Dates: start: 20110502, end: 20110507
  10. LIDOCAINE HYDROCHLORIDE [Concomitant]
     Indication: LOCAL ANAESTHESIA
     Route: 058
     Dates: start: 20110502, end: 20110502

REACTIONS (2)
  - INTESTINAL PERFORATION [None]
  - PSEUDOMEMBRANOUS COLITIS [None]
